FAERS Safety Report 6106033-1 (Version None)
Quarter: 2009Q1

REPORT INFORMATION
  Report Type: 
  Country: None (occurrence: None)
  Receive Date: 20090306
  Receipt Date: 20090223
  Transmission Date: 20090719
  Serious: Yes (Other)
  Sender: FDA-Public Use
  Company Number: DE-ROCHE-616797

PATIENT
  Age: 32 Year
  Sex: Male
  Weight: 83 kg

DRUGS (1)
  1. ISOTRETINOIN [Suspect]
     Route: 065

REACTIONS (4)
  - ANAL FISTULA [None]
  - MYALGIA [None]
  - SWEAT GLAND INFECTION [None]
  - THERAPEUTIC RESPONSE DECREASED [None]
